FAERS Safety Report 18419638 (Version 3)
Quarter: 2021Q3

REPORT INFORMATION
  Report Type: Spontaneous
  Country: DE (occurrence: DE)
  Receive Date: 20201023
  Receipt Date: 20210702
  Transmission Date: 20211014
  Serious: Yes (Death, Hospitalization, Other)
  Sender: FDA-Public Use
  Company Number: NVSC2020DE281384

PATIENT
  Sex: Male
  Weight: 75 kg

DRUGS (6)
  1. ENTRESTO [Suspect]
     Active Substance: SACUBITRIL\VALSARTAN
     Indication: CARDIAC FAILURE
     Dosage: 100 MG (49 MG /51 MG), BID (2 TIMES DAILY: 1 DF MORNING AND 1 DE IN EVENING)
     Route: 048
     Dates: start: 201907, end: 20201012
  2. TORASEMID [Concomitant]
     Active Substance: TORSEMIDE
     Indication: SWELLING
  3. ENTRESTO [Suspect]
     Active Substance: SACUBITRIL\VALSARTAN
     Dosage: 2 DF, QD (1 DF MORNING, 1 DF EVENING)
     Route: 065
     Dates: start: 202005, end: 202012
  4. BISOPROLOL [Concomitant]
     Active Substance: BISOPROLOL
     Indication: HYPERTENSION
     Dosage: 10 MG, QD (ONCE IN THE MORNING)
     Route: 065
  5. AMIODARON [Concomitant]
     Active Substance: AMIODARONE
     Indication: ATRIAL FIBRILLATION
     Dosage: 100 MG, QD (ONCE IN THE MORNING)
     Route: 065
  6. TORASEMID [Concomitant]
     Active Substance: TORSEMIDE
     Indication: OEDEMA
     Dosage: 30 MG, QD (ONCE IN MORNING)
     Route: 065

REACTIONS (10)
  - Hypotension [Unknown]
  - Blood creatinine decreased [Not Recovered/Not Resolved]
  - Death [Fatal]
  - Product use in unapproved indication [Unknown]
  - Myocardial infarction [Recovered/Resolved]
  - Pruritus [Not Recovered/Not Resolved]
  - Sleep disorder [Not Recovered/Not Resolved]
  - Renal failure [Unknown]
  - Diarrhoea [Recovered/Resolved]
  - Anorectal discomfort [Recovered/Resolved]

NARRATIVE: CASE EVENT DATE: 2020
